FAERS Safety Report 24245146 (Version 3)
Quarter: 2025Q1

REPORT INFORMATION
  Report Type: Report from Study
  Country: US (occurrence: US)
  Receive Date: 20240823
  Receipt Date: 20250228
  Transmission Date: 20250408
  Serious: Yes (Death, Hospitalization)
  Sender: NOVARTIS
  Company Number: US-002147023-NVSC2024US168651

PATIENT
  Sex: Male

DRUGS (1)
  1. COSENTYX [Suspect]
     Active Substance: SECUKINUMAB
     Indication: Product used for unknown indication
     Route: 050

REACTIONS (3)
  - Death [Fatal]
  - Pneumonia [Unknown]
  - Chronic obstructive pulmonary disease [Unknown]
